FAERS Safety Report 10190616 (Version 1)
Quarter: 2014Q2

REPORT INFORMATION
  Report Type: Spontaneous
  Country: CN (occurrence: CN)
  Receive Date: 20140523
  Receipt Date: 20140523
  Transmission Date: 20141212
  Serious: Yes (Hospitalization)
  Sender: FDA-Public Use
  Company Number: CN-ROCHE-1404592

PATIENT
  Age: 24 Day
  Sex: Female
  Weight: 2 kg

DRUGS (2)
  1. ROCEPHIN [Suspect]
     Indication: BRONCHITIS
     Dosage: THE CHILD RECEIVED CEFTRIAXONE SODIUM 160MG + 0.9% NS 40ML QD IVGTT FOR ANTI-INFECTIVE THERAPY
     Route: 041
     Dates: start: 20130227, end: 20130303
  2. BUDESONIDE [Concomitant]
     Indication: BRONCHITIS
     Route: 055
     Dates: start: 20130227, end: 20130304

REACTIONS (2)
  - Gastric haemorrhage [Unknown]
  - Platelet count decreased [Unknown]
